FAERS Safety Report 21508415 (Version 2)
Quarter: 2022Q4

REPORT INFORMATION
  Report Type: Spontaneous
  Country: US (occurrence: US)
  Receive Date: 20221026
  Receipt Date: 20221117
  Transmission Date: 20230112
  Serious: Yes (Other)
  Sender: FDA-Public Use
  Company Number: US-LUPIN PHARMACEUTICALS INC.-2022-12465

PATIENT
  Age: 65 Year
  Sex: Male

DRUGS (7)
  1. OXYCODONE HYDROCHLORIDE [Suspect]
     Active Substance: OXYCODONE HYDROCHLORIDE
     Indication: Procedural pain
     Dosage: 5 MG, EVERY FOUR HOURS AS NEEDED FOR PAIN LEVEL 1-5 AND 10MG FOR PAIN LEVEL 6-10, A 150 TABLETS OF O
     Route: 065
  2. OXYCODONE HYDROCHLORIDE [Suspect]
     Active Substance: OXYCODONE HYDROCHLORIDE
     Dosage: 10 MG, 5 MG, EVERY FOUR HOURS AS NEEDED FOR PAIN LEVEL 1-5 AND 10MG FOR PAIN LEVEL 6-10, A 150 TABLE
     Route: 065
  3. BUPRENORPHINE [Concomitant]
     Active Substance: BUPRENORPHINE
     Indication: Procedural pain
     Dosage: 8 MG, BID
     Route: 065
  4. BUPRENORPHINE [Concomitant]
     Active Substance: BUPRENORPHINE
     Dosage: 32 MG, PATIENT INCREASED HIS BUPRENORPHINE TO 32 MG DAILY WITHOUT CONSULTING HIS BUPRENORPHINE PROVI
     Route: 065
  5. BUPRENORPHINE [Concomitant]
     Active Substance: BUPRENORPHINE
     Dosage: 20 MG, QD, BUPRENORPHINE DOSE WAS GRADUALLY DECREASED TO 20 MG DAILY
     Route: 065
  6. MELOXICAM [Concomitant]
     Active Substance: MELOXICAM
     Indication: Procedural pain
     Dosage: 15 MG, QD
     Route: 065
  7. ASPIRIN [Concomitant]
     Active Substance: ASPIRIN
     Indication: Procedural pain
     Dosage: 325 MG, QD
     Route: 065

REACTIONS (2)
  - Rebound effect [Recovering/Resolving]
  - Procedural pain [Recovering/Resolving]
